FAERS Safety Report 7720562-6 (Version None)
Quarter: 2011Q3

REPORT INFORMATION
  Report Type: 
  Country: None (occurrence: None)
  Receive Date: 20110831
  Receipt Date: 20110831
  Transmission Date: 20111222
  Serious: Yes (Other)
  Sender: FDA-Public Use
  Company Number: None

PATIENT
  Sex: Male
  Weight: 102.05 kg

DRUGS (2)
  1. LYRICA [Suspect]
     Indication: DIABETES MELLITUS
     Dosage: 2
     Route: 048
     Dates: start: 20110503, end: 20110611
  2. WELCHOL [Concomitant]
     Indication: BLOOD CHOLESTEROL INCREASED
     Dosage: 6
     Route: 048
     Dates: start: 20110403, end: 20110616

REACTIONS (19)
  - WEIGHT INCREASED [None]
  - INSOMNIA [None]
  - NERVOUSNESS [None]
  - DEPRESSION [None]
  - HEPATIC STEATOSIS [None]
  - ABDOMINAL DISTENSION [None]
  - DRY THROAT [None]
  - HYPOPNOEA [None]
  - CHEST PAIN [None]
  - DYSPNOEA [None]
  - COUGH [None]
  - NIGHTMARE [None]
  - HEPATOSPLENOMEGALY [None]
  - VISUAL IMPAIRMENT [None]
  - ANXIETY [None]
  - RASH [None]
  - ASTHENIA [None]
  - HEADACHE [None]
  - SPLEEN DISORDER [None]
